FAERS Safety Report 4687331-5 (Version None)
Quarter: 2005Q2

REPORT INFORMATION
  Report Type: 
  Country: None (occurrence: None)
  Receive Date: 20050609
  Receipt Date: 20050525
  Transmission Date: 20051028
  Serious: Yes (Death)
  Sender: FDA-Public Use
  Company Number: 2005S1004059

PATIENT
  Age: 77 Year
  Sex: Male

DRUGS (7)
  1. CLOZAPINE [Suspect]
     Indication: SCHIZOPHRENIA
     Dosage: 25 MG QD PO
     Route: 048
     Dates: start: 20040301, end: 20050501
  2. MORPHINE [Concomitant]
  3. LORAZEPAM [Concomitant]
  4. VANCOMYCIN [Concomitant]
  5. CARBIDOPA AND LEVODOPA [Concomitant]
  6. HEPARIN-FRACTION, [Concomitant]
  7. SODIUM SALT [Concomitant]

REACTIONS (1)
  - FAILURE TO THRIVE [None]
